FAERS Safety Report 5411258-4 (Version None)
Quarter: 2007Q3

REPORT INFORMATION
  Report Type: 
  Country: None (occurrence: None)
  Receive Date: 20070810
  Receipt Date: 20070801
  Transmission Date: 20080115
  Serious: Yes (Other)
  Sender: FDA-Public Use
  Company Number: DE-ROCHE-409274

PATIENT
  Age: 49 Year
  Sex: Male

DRUGS (2)
  1. MYCOPHENOLATE MOFETIL [Suspect]
     Route: 042
     Dates: start: 20050602, end: 20050617
  2. TACROLIMUS [Suspect]
     Route: 048
     Dates: start: 20050602, end: 20050617

REACTIONS (1)
  - BILIARY FIBROSIS [None]
